FAERS Safety Report 11816583 (Version 2)
Quarter: 2015Q4

REPORT INFORMATION
  Report Type: Spontaneous
  Country: JP (occurrence: JP)
  Receive Date: 20151210
  Receipt Date: 20151230
  Transmission Date: 20160305
  Serious: Yes (Hospitalization)
  Sender: FDA-Public Use
  Company Number: JP-ASTRAZENECA-2015SF22027

PATIENT

DRUGS (4)
  1. PARIET [Concomitant]
     Active Substance: RABEPRAZOLE SODIUM
  2. NEXIUM [Suspect]
     Active Substance: ESOMEPRAZOLE MAGNESIUM
     Indication: GASTRIC ULCER
     Route: 048
  3. FINIBAX [Suspect]
     Active Substance: DORIPENEM MONOHYDRATE
     Route: 065
  4. NEXIUM [Suspect]
     Active Substance: ESOMEPRAZOLE MAGNESIUM
     Indication: GASTRIC ULCER
     Route: 048

REACTIONS (4)
  - Sepsis [Unknown]
  - Shock [Unknown]
  - Hypophagia [Recovered/Resolved]
  - White blood cell count decreased [Recovered/Resolved]
